FAERS Safety Report 4910390-9 (Version None)
Quarter: 2006Q1

REPORT INFORMATION
  Report Type: 
  Country: None (occurrence: None)
  Receive Date: 20060209
  Receipt Date: 20060124
  Transmission Date: 20060701
  Serious: Yes (Other)
  Sender: FDA-Public Use
  Company Number: GB200601000596

PATIENT
  Sex: Male

DRUGS (2)
  1. CIALIS [Suspect]
     Indication: ERECTILE DYSFUNCTION
     Dosage: 20 MG
  2. LEVITRA [Concomitant]

REACTIONS (8)
  - BLINDNESS UNILATERAL [None]
  - CONVULSION [None]
  - EPILEPSY [None]
  - EYE DISORDER [None]
  - HEAD TITUBATION [None]
  - STRESS [None]
  - TREMOR [None]
  - VISUAL ACUITY REDUCED [None]
